FAERS Safety Report 8767591 (Version 1)
Quarter: 2012Q4

REPORT INFORMATION
  Report Type: Report from Study
  Country: JP (occurrence: JP)
  Receive Date: 20120904
  Receipt Date: 20120904
  Transmission Date: 20130627
  Serious: Yes (Hospitalization)
  Sender: FDA-Public Use
  Company Number: JP-ASTELLAS-2012US007494

PATIENT
  Age: 72 Year
  Sex: Female

DRUGS (14)
  1. ERLOTINIB TABLET [Suspect]
     Indication: ADENOCARCINOMA PANCREAS
     Dosage: 100 mg, UID/QD
     Route: 047
     Dates: start: 20120410, end: 20120423
  2. GEMCITABINE HYDROCHLORIDE [Suspect]
     Indication: ADENOCARCINOMA PANCREAS
     Dosage: 1000 mg/m2, Weekly
     Route: 041
     Dates: start: 20120410, end: 20120417
  3. GEMCITABINE HYDROCHLORIDE [Suspect]
     Dosage: 800 mg/m2, Q2W
     Route: 041
     Dates: start: 20120508, end: 20120522
  4. GEMCITABINE HYDROCHLORIDE [Suspect]
     Dosage: 800 mg/m2, Q2W
     Route: 041
     Dates: start: 20120612
  5. GRANISETRON /01178102/ [Concomitant]
     Indication: PRODUCT USED FOR UNKNOWN INDICATION
     Dosage: 3 mg, Unknown/D
     Route: 042
     Dates: start: 20120410
  6. DEXART [Concomitant]
     Indication: PREMEDICATION
     Dosage: 6.6 mg, Unknown/D
     Route: 042
     Dates: start: 20120410
  7. SEVEN E.P [Concomitant]
     Indication: PRODUCT USED FOR UNKNOWN INDICATION
     Dosage: 3 DF, UID/QD
     Route: 048
     Dates: end: 20120627
  8. ZANTAC [Concomitant]
     Indication: PRODUCT USED FOR UNKNOWN INDICATION
     Dosage: 300 mg, UID/QD
     Route: 048
     Dates: end: 20120418
  9. LAC-B [Concomitant]
     Indication: PRODUCT USED FOR UNKNOWN INDICATION
     Dosage: 3 g, UID/QD
     Route: 048
  10. BERIZYM                            /01945301/ [Concomitant]
     Indication: PRODUCT USED FOR UNKNOWN INDICATION
     Dosage: 3 g, UID/QD
     Route: 048
  11. TRAMAL [Concomitant]
     Indication: PRODUCT USED FOR UNKNOWN INDICATION
     Dosage: 75 mg, UID/QD
     Route: 048
     Dates: end: 20120516
  12. SOLETON [Concomitant]
     Indication: PRODUCT USED FOR UNKNOWN INDICATION
     Dosage: 240 mg, UID/QD
     Route: 048
  13. CYTOTEC [Concomitant]
     Indication: PRODUCT USED FOR UNKNOWN INDICATION
     Dosage: 600 ug, UID/QD
     Route: 048
  14. NOVAMIN [Suspect]
     Indication: PRODUCT USED FOR UNKNOWN INDICATION
     Dosage: 15 mg, UID/QD
     Route: 048

REACTIONS (4)
  - Neutrophil count decreased [Recovered/Resolved]
  - Platelet count decreased [Recovered/Resolved]
  - Stomatitis [Recovered/Resolved]
  - Dermatitis acneiform [Recovered/Resolved]
